FAERS Safety Report 4301152-4 (Version None)
Quarter: 2004Q1

REPORT INFORMATION
  Report Type: 
  Country: None (occurrence: None)
  Receive Date: 20040219
  Receipt Date: 20040204
  Transmission Date: 20041129
  Serious: Yes (Life-Threatening, Hospitalization, Disabling)
  Sender: FDA-Public Use
  Company Number: 2004IM000311

PATIENT
  Age: 58 Year
  Sex: Female

DRUGS (4)
  1. ADVAFERON (A643_INTERFERON ALFACON-1) [Suspect]
     Indication: HEPATITIS C
     Dosage: 18 MU;QD;SUBCUTANEOUS
     Route: 058
     Dates: start: 20020405, end: 20020420
  2. CINAL [Concomitant]
  3. URSODEOXYCHOLIC ACID [Concomitant]
  4. LIVACT [Concomitant]

REACTIONS (4)
  - ATAXIA [None]
  - BLOOD PRESSURE INCREASED [None]
  - BRAIN STEM HAEMORRHAGE [None]
  - PLATELET COUNT DECREASED [None]
